FAERS Safety Report 4838884-5 (Version None)
Quarter: 2005Q4

REPORT INFORMATION
  Report Type: 
  Country: None (occurrence: None)
  Receive Date: 20051129
  Receipt Date: 20050817
  Transmission Date: 20060501
  Serious: No
  Sender: FDA-Public Use
  Company Number: US-GLAXOSMITHKLINE-A0570642A

PATIENT
  Age: 60 Year
  Sex: Female

DRUGS (6)
  1. LOTRONEX [Suspect]
     Indication: IRRITABLE BOWEL SYNDROME
     Dosage: 1MG PER DAY
     Route: 048
     Dates: start: 20050815, end: 20050817
  2. XANAX [Concomitant]
  3. PROPRANOLOL [Concomitant]
  4. RESTORIL [Concomitant]
  5. PREMPRO [Concomitant]
  6. VITAMIN [Concomitant]

REACTIONS (4)
  - DIARRHOEA [None]
  - PARAESTHESIA [None]
  - TREMOR [None]
  - VOMITING [None]
